FAERS Safety Report 11104975 (Version 1)
Quarter: 2015Q2

REPORT INFORMATION
  Report Type: Spontaneous
  Country: US (occurrence: US)
  Receive Date: 20150511
  Receipt Date: 20150511
  Transmission Date: 20150821
  Serious: Yes (Hospitalization, Other)
  Sender: FDA-Public Use
  Company Number: US-009507513-1505USA000502

PATIENT
  Age: 73 Year
  Sex: Male

DRUGS (5)
  1. SPIRONOLACTONE. [Suspect]
     Active Substance: SPIRONOLACTONE
     Indication: DIURETIC THERAPY
     Dosage: 25 MG, UNK
     Dates: start: 2011, end: 20150318
  2. ASPIRIN. [Suspect]
     Active Substance: ASPIRIN
     Dosage: 81 MG, QD
  3. PRINIVIL [Suspect]
     Active Substance: LISINOPRIL
     Indication: HYPOTENSION
     Dosage: UNK
     Route: 048
     Dates: start: 201407
  4. PRINIVIL [Suspect]
     Active Substance: LISINOPRIL
     Indication: HEART RATE DECREASED
  5. FUROSEMIDE. [Suspect]
     Active Substance: FUROSEMIDE
     Dosage: 25 MG, UNK

REACTIONS (20)
  - Single functional kidney [Unknown]
  - Breast pain [Unknown]
  - Fracture [Not Recovered/Not Resolved]
  - Cough [Unknown]
  - Dyspnoea [Unknown]
  - Fatigue [Unknown]
  - Cholelithiasis [Unknown]
  - Adrenal disorder [Unknown]
  - Yellow skin [Unknown]
  - Chills [Unknown]
  - Bone cancer metastatic [Unknown]
  - Muscle spasms [Unknown]
  - Decreased appetite [Unknown]
  - Vertebral lesion [Not Recovered/Not Resolved]
  - Blood potassium decreased [Unknown]
  - Back pain [Unknown]
  - Muscle twitching [Unknown]
  - Constipation [Unknown]
  - Blood potassium increased [Unknown]
  - Abdominal pain upper [Unknown]

NARRATIVE: CASE EVENT DATE: 2014
